FAERS Safety Report 8011407-8 (Version None)
Quarter: 2011Q4

REPORT INFORMATION
  Report Type: 
  Country: None (occurrence: None)
  Receive Date: 20111228
  Receipt Date: 20111215
  Transmission Date: 20120403
  Serious: Yes (Hospitalization)
  Sender: FDA-Public Use
  Company Number: JP-PFIZER INC-2011171032

PATIENT
  Age: 62 Year
  Sex: Male
  Weight: 53.8 kg

DRUGS (7)
  1. LIPITOR [Suspect]
     Indication: HYPERLIPIDAEMIA
     Dosage: 5 MG, 1X/DAY
     Route: 048
     Dates: start: 20100401, end: 20110720
  2. AMLODIPINE [Concomitant]
     Indication: HYPERTENSION
     Dosage: UNK
     Dates: start: 20080801
  3. MARZULENE S [Concomitant]
     Indication: GASTRITIS
     Dosage: UNK
     Dates: start: 20040101
  4. SAWADOL L [Concomitant]
     Indication: CORONARY ARTERY BYPASS
     Dosage: UNK
     Route: 048
     Dates: start: 20040101, end: 20110727
  5. ASPIRIN [Concomitant]
     Indication: CORONARY ARTERY BYPASS
     Dosage: UNK
     Route: 048
     Dates: start: 20040101
  6. TICLOPIDINE HYDROCHLORIDE [Suspect]
     Indication: CORONARY ARTERY BYPASS
     Dosage: 100 MG, 2X/DAY
     Route: 048
     Dates: start: 20070101, end: 20110720
  7. LOSARTAN POTASSIUM [Concomitant]
     Indication: HYPERTENSION
     Dosage: UNK
     Route: 048
     Dates: start: 20100201

REACTIONS (1)
  - INTERSTITIAL LUNG DISEASE [None]
